FAERS Safety Report 13329483 (Version 3)
Quarter: 2017Q2

REPORT INFORMATION
  Report Type: Report from Study
  Country: NL (occurrence: NL)
  Receive Date: 20170313
  Receipt Date: 20170606
  Transmission Date: 20170830
  Serious: Yes (Death, Other)
  Sender: FDA-Public Use
  Company Number: NL-BEH-2017078790

PATIENT
  Age: 81 Year
  Sex: Female
  Weight: 81 kg

DRUGS (4)
  1. DESMOPRESSIN [Concomitant]
     Active Substance: DESMOPRESSIN
     Dosage: 0.3 ?G/KG, UNK
     Route: 042
     Dates: start: 20130422, end: 20130422
  2. HAEMOCOMPLETTAN P [Suspect]
     Active Substance: FIBRINOGEN HUMAN
     Indication: CARDIAC PERFORATION
  3. HAEMOCOMPLETTAN P [Suspect]
     Active Substance: FIBRINOGEN HUMAN
     Indication: PROCEDURAL HAEMORRHAGE
     Dosage: 6 G, TOT
     Route: 042
     Dates: start: 20130422
  4. TRANEXAMIC ACID. [Concomitant]
     Active Substance: TRANEXAMIC ACID
     Indication: PROCOAGULANT THERAPY
     Dosage: 2 G, SINGLE
     Route: 042
     Dates: start: 20130422, end: 20130422

REACTIONS (8)
  - Prerenal failure [Unknown]
  - Hemiparesis [Unknown]
  - Embolic stroke [Unknown]
  - Thoracotomy [Unknown]
  - Cardiogenic shock [Unknown]
  - Cardiac failure acute [Unknown]
  - Cardiac output decreased [Unknown]
  - Multiple organ dysfunction syndrome [Fatal]

NARRATIVE: CASE EVENT DATE: 20130423
